FAERS Safety Report 10624695 (Version 3)
Quarter: 2014Q4

REPORT INFORMATION
  Report Type: Report from Study
  Country: US (occurrence: US)
  Receive Date: 20141204
  Receipt Date: 20141223
  Transmission Date: 20150529
  Serious: Yes (Death, Other)
  Sender: FDA-Public Use
  Company Number: US-ROCHE-1370942

PATIENT
  Age: 53 Year
  Sex: Male
  Weight: 72.64 kg

DRUGS (9)
  1. AVASTIN [Suspect]
     Active Substance: BEVACIZUMAB
     Indication: GLIOBLASTOMA MULTIFORME
     Route: 042
     Dates: start: 20140129
  2. KEPPRA [Concomitant]
     Active Substance: LEVETIRACETAM
     Indication: SEIZURE
     Route: 065
  3. PROZAC [Concomitant]
     Active Substance: FLUOXETINE HYDROCHLORIDE
     Indication: PRODUCT USED FOR UNKNOWN INDICATION
     Route: 048
     Dates: start: 201311
  4. SANCUSO [Concomitant]
     Active Substance: GRANISETRON
     Indication: NAUSEA
  5. SANCUSO [Concomitant]
     Active Substance: GRANISETRON
     Indication: VOMITING
  6. WARFARIN [Concomitant]
     Active Substance: WARFARIN
     Indication: THROMBOSIS
     Route: 048
     Dates: start: 201402
  7. OXYBUTYNIN [Concomitant]
     Active Substance: OXYBUTYNIN
     Route: 048
  8. TEMODAR [Concomitant]
     Active Substance: TEMOZOLOMIDE
     Indication: BRAIN NEOPLASM
     Dosage: 5 DAYS ON AND THEN 23 DAYS OFF, CANCER PILL 200-300MG
     Route: 065
  9. ANDROGEL [Concomitant]
     Active Substance: TESTOSTERONE
     Indication: BLOOD TESTOSTERONE DECREASED
     Dosage: 6 PUMPS,  PUTS ON SHOULDER ,
     Route: 065

REACTIONS (19)
  - Death [Fatal]
  - Drug ineffective [Unknown]
  - Feeling abnormal [Not Recovered/Not Resolved]
  - Epistaxis [Unknown]
  - Therapeutic response decreased [Unknown]
  - Disturbance in attention [Recovering/Resolving]
  - Vomiting [Recovering/Resolving]
  - Constipation [Not Recovered/Not Resolved]
  - Somnolence [Not Recovered/Not Resolved]
  - Blood iron decreased [Recovering/Resolving]
  - Erythema [Recovering/Resolving]
  - Decreased appetite [Unknown]
  - Urinary incontinence [Not Recovered/Not Resolved]
  - Nausea [Recovering/Resolving]
  - Diarrhoea [Not Recovered/Not Resolved]
  - Platelet count decreased [Recovering/Resolving]
  - Blood testosterone decreased [Recovering/Resolving]
  - Faecal incontinence [Not Recovered/Not Resolved]
  - Epistaxis [Recovering/Resolving]

NARRATIVE: CASE EVENT DATE: 20140205
